FAERS Safety Report 5741885-6 (Version None)
Quarter: 2008Q2

REPORT INFORMATION
  Report Type: 
  Country: None (occurrence: None)
  Receive Date: 20080519
  Receipt Date: 20080507
  Transmission Date: 20081010
  Serious: Yes (Hospitalization, Other)
  Sender: FDA-Public Use
  Company Number: DE-JNJFOC-20080303929

PATIENT
  Age: 89 Year
  Sex: Male

DRUGS (6)
  1. TAVANIC [Suspect]
     Indication: BRONCHITIS BACTERIAL
     Route: 048
  2. RISPERDAL [Concomitant]
     Route: 048
  3. EUNERPAN [Concomitant]
     Route: 048
  4. DELIX [Concomitant]
     Route: 048
  5. BISOPROLOL FUMARATE [Concomitant]
     Route: 048
  6. SORTIS [Concomitant]
     Route: 048

REACTIONS (2)
  - HALLUCINATION [None]
  - PSYCHOTIC DISORDER [None]
